FAERS Safety Report 6495641-4 (Version None)
Quarter: 2009Q4

REPORT INFORMATION
  Report Type: 
  Country: None (occurrence: None)
  Receive Date: 20091214
  Receipt Date: 20090728
  Transmission Date: 20100525
  Serious: No
  Sender: FDA-Public Use
  Company Number: US-BRISTOL-MYERS SQUIBB COMPANY-14718886

PATIENT
  Age: 60 Year
  Sex: Male

DRUGS (1)
  1. ABILIFY [Suspect]
     Indication: DEPRESSION
     Dosage: STARTED WITH 1/2 TAB (2.5MG)/D, THEN INCREASED TO 5MG/D
     Dates: start: 20090701, end: 20090701

REACTIONS (1)
  - THROAT TIGHTNESS [None]
